FAERS Safety Report 17399097 (Version 2)
Quarter: 2020Q1

REPORT INFORMATION
  Report Type: Report from Study
  Country: JP (occurrence: JP)
  Receive Date: 20200210
  Receipt Date: 20200226
  Transmission Date: 20200409
  Serious: Yes (Death)
  Sender: FDA-Public Use
  Company Number: JP-DSJP-DSJ-2020-104155

PATIENT

DRUGS (2)
  1. HEPARIN [Concomitant]
     Active Substance: HEPARIN SODIUM
     Indication: ATRIAL FIBRILLATION
     Dosage: UNK
     Route: 065
     Dates: start: 20171130, end: 20171221
  2. EDOXABAN [Suspect]
     Active Substance: EDOXABAN TOSYLATE
     Indication: TACHYCARDIA
     Dosage: 60 MG, QD
     Route: 048
     Dates: start: 20180131, end: 20180206

REACTIONS (1)
  - Interstitial lung disease [Fatal]

NARRATIVE: CASE EVENT DATE: 20180215
